FAERS Safety Report 24213669 (Version 1)
Quarter: 2024Q3

REPORT INFORMATION
  Report Type: Spontaneous
  Country: FR (occurrence: FR)
  Receive Date: 20240815
  Receipt Date: 20240815
  Transmission Date: 20241017
  Serious: Yes (Life-Threatening, Hospitalization)
  Sender: Waylis
  Company Number: None

PATIENT
  Age: 42 Year
  Sex: Female

DRUGS (6)
  1. DIAZEPAM [Suspect]
     Active Substance: DIAZEPAM
     Indication: Toxicity to various agents
     Route: 050
     Dates: start: 20240218
  2. DIAZEPAM [Suspect]
     Active Substance: DIAZEPAM
     Indication: Toxicity to various agents
     Route: 050
     Dates: start: 20240218
  3. NAPROXEN [Suspect]
     Active Substance: NAPROXEN
     Indication: Toxicity to various agents
     Route: 050
     Dates: start: 20240218
  4. AMITRIPTYLINE [Suspect]
     Active Substance: AMITRIPTYLINE
     Indication: Toxicity to various agents
     Route: 050
     Dates: start: 20240218
  5. TRAMADOL [Suspect]
     Active Substance: TRAMADOL\TRAMADOL HYDROCHLORIDE
     Indication: Toxicity to various agents
     Route: 050
     Dates: start: 20240218
  6. AMITRIPTYLINE HYDROCHLORIDE [Suspect]
     Active Substance: AMITRIPTYLINE HYDROCHLORIDE
     Indication: Toxicity to various agents
     Dosage: 1 FLACON
     Route: 050
     Dates: start: 20240218

REACTIONS (5)
  - Transaminases increased [Recovered/Resolved]
  - Pneumonia aspiration [Recovered/Resolved]
  - Sciatic nerve neuropathy [Not Recovered/Not Resolved]
  - Rhabdomyolysis [Recovered/Resolved]
  - Coma [Recovered/Resolved]

NARRATIVE: CASE EVENT DATE: 20240220
